FAERS Safety Report 8607924-X (Version None)
Quarter: 2012Q3

REPORT INFORMATION
  Report Type: 
  Country: None (occurrence: None)
  Receive Date: 20120821
  Receipt Date: 20120523
  Transmission Date: 20120928
  Serious: No
  Sender: FDA-Public Use
  Company Number: US-MYLANLABS-2012S1009199

PATIENT
  Age: 69 Year
  Sex: Female

DRUGS (6)
  1. NITROFURANTOIN [Suspect]
     Indication: URINARY TRACT INFECTION
     Route: 048
     Dates: start: 20120106, end: 20120106
  2. VITAMIN TAB [Concomitant]
  3. HYZAAR [Concomitant]
  4. NITROFURANTOIN [Suspect]
     Route: 048
     Dates: start: 20120420, end: 20120420
  5. VAGIFEM [Concomitant]
  6. ASPIRIN [Concomitant]

REACTIONS (6)
  - NIGHT SWEATS [None]
  - MUSCLE SPASMS [None]
  - ASTHENIA [None]
  - ABDOMINAL DISCOMFORT [None]
  - CHILLS [None]
  - MALAISE [None]
